FAERS Safety Report 5643154-1 (Version None)
Quarter: 2008Q1

REPORT INFORMATION
  Report Type: 
  Country: None (occurrence: None)
  Receive Date: 20080228
  Receipt Date: 20080226
  Transmission Date: 20080703
  Serious: Yes (Hospitalization)
  Sender: FDA-Public Use
  Company Number: AR-WYE-H02406608

PATIENT
  Sex: Male

DRUGS (6)
  1. RAPAMUNE [Suspect]
     Indication: HEART TRANSPLANT
     Route: 048
     Dates: start: 20030914
  2. IMURAN [Concomitant]
  3. CARVEDILOL [Concomitant]
  4. FUROSEMIDE [Concomitant]
  5. METICORTEN [Concomitant]
     Indication: IMMUNOSUPPRESSANT DRUG THERAPY
  6. LOTRIAL [Concomitant]
     Indication: HYPERTENSION

REACTIONS (4)
  - COMA [None]
  - HEART TRANSPLANT REJECTION [None]
  - INFECTION [None]
  - RENAL FAILURE ACUTE [None]
